FAERS Safety Report 18566296 (Version 1)
Quarter: 2020Q4

REPORT INFORMATION
  Report Type: Spontaneous
  Country: US (occurrence: US)
  Receive Date: 20201201
  Receipt Date: 20201201
  Transmission Date: 20210114
  Serious: No
  Sender: FDA-Public Use
  Company Number: US-BAUSCH-BL-2020-034247

PATIENT
  Age: 73 Year
  Sex: Female
  Weight: 61.29 kg

DRUGS (2)
  1. LOTEMAX SM [Suspect]
     Active Substance: LOTEPREDNOL ETABONATE
     Indication: POSTOPERATIVE CARE
     Dosage: ONE DROP IN THE RIGHT EYE, STARTED IN END OF OCT/2020
     Route: 047
     Dates: start: 202010, end: 2020
  2. LOTEMAX SM [Suspect]
     Active Substance: LOTEPREDNOL ETABONATE
     Dosage: ONE DROP IN THE RIGHT EYE
     Route: 047
     Dates: start: 2020

REACTIONS (6)
  - Gait disturbance [Recovered/Resolved]
  - Anxiety [Not Recovered/Not Resolved]
  - Wrong technique in product usage process [Unknown]
  - Nausea [Recovered/Resolved]
  - Balance disorder [Recovered/Resolved]
  - Extra dose administered [Unknown]

NARRATIVE: CASE EVENT DATE: 2020
